FAERS Safety Report 18574723 (Version 8)
Quarter: 2020Q4

REPORT INFORMATION
  Report Type: Report from Study
  Country: CZ (occurrence: CZ)
  Receive Date: 20201203
  Receipt Date: 20201223
  Transmission Date: 20210114
  Serious: Yes (Hospitalization)
  Sender: FDA-Public Use
  Company Number: CZ-EISAI MEDICAL RESEARCH-EC-2020-084625

PATIENT
  Age: 14 Year
  Sex: Male
  Weight: 44.1 kg

DRUGS (11)
  1. MAGNESIUM SULFATE, POTASSIUM PHOSPHATE, MONOBASIC, SODIUM CHLORIDE [Concomitant]
     Dates: start: 20200921
  2. TRAMAL RETARD [Concomitant]
     Active Substance: TRAMADOL
     Dates: start: 20201109
  3. SULFAMETHOXAZOLE;TRIMETHOPRIM [Concomitant]
     Active Substance: SULFAMETHOXAZOLE\TRIMETHOPRIM
     Dates: start: 20191029, end: 20201110
  4. MAGNOSOLV [Concomitant]
     Active Substance: MAGNESIUM CARBONATE\MAGNESIUM OXIDE
     Dates: start: 20201015, end: 20201109
  5. POTASSIUM CHLORIDE. [Concomitant]
     Active Substance: POTASSIUM CHLORIDE
     Dates: start: 20200921, end: 20201109
  6. CALCICHEW [Concomitant]
     Active Substance: CALCIUM CARBONATE
     Dates: start: 20201015, end: 20201109
  7. ZOLOFT [Concomitant]
     Active Substance: SERTRALINE HYDROCHLORIDE
     Dates: start: 201910
  8. LENVATINIB [Suspect]
     Active Substance: LENVATINIB
     Indication: PERIPHERAL PRIMITIVE NEUROECTODERMAL TUMOUR OF SOFT TISSUE
     Route: 048
     Dates: start: 20201111, end: 20201126
  9. SUMETROLIM [Concomitant]
     Active Substance: SULFAMETHOXAZOLE\TRIMETHOPRIM
     Dates: start: 20201116
  10. TRAMAL [Concomitant]
     Active Substance: TRAMADOL
     Dates: start: 20200713, end: 20201109
  11. LENVATINIB [Suspect]
     Active Substance: LENVATINIB
     Indication: EWING^S SARCOMA
     Route: 048
     Dates: start: 20201202, end: 20201208

REACTIONS (1)
  - Hyperbilirubinaemia [Recovered/Resolved]

NARRATIVE: CASE EVENT DATE: 20201119
